FAERS Safety Report 12978898 (Version 1)
Quarter: 2016Q4

REPORT INFORMATION
  Report Type: Spontaneous
  Country: PL (occurrence: PL)
  Receive Date: 20161128
  Receipt Date: 20161128
  Transmission Date: 20170207
  Serious: Yes (Disabling, Other)
  Sender: FDA-Public Use
  Company Number: PL-TEVA-714026ISR

PATIENT
  Age: 35 Year
  Sex: Female

DRUGS (4)
  1. CARBAMAZEPINE. [Suspect]
     Active Substance: CARBAMAZEPINE
  2. LAMOTRIGINE. [Suspect]
     Active Substance: LAMOTRIGINE
  3. QUETIAPINE. [Suspect]
     Active Substance: QUETIAPINE
  4. GABAPENTIN. [Suspect]
     Active Substance: GABAPENTIN

REACTIONS (2)
  - Depression [Unknown]
  - Drug ineffective [Not Recovered/Not Resolved]
